FAERS Safety Report 6049046-0 (Version None)
Quarter: 2009Q1

REPORT INFORMATION
  Report Type: 
  Country: None (occurrence: None)
  Receive Date: 20090123
  Receipt Date: 20090112
  Transmission Date: 20090719
  Serious: Yes (Other)
  Sender: FDA-Public Use
  Company Number: JP-ROCHE-607906

PATIENT
  Age: 39 Year
  Sex: Male

DRUGS (7)
  1. OSELTAMIVIR [Suspect]
     Route: 065
  2. OSELTAMIVIR [Suspect]
     Route: 065
  3. FLUDARABINE [Concomitant]
     Indication: PREOPERATIVE CARE
     Dosage: ON DAYS -6 TO -2 (TOTAL DOSE: 125 MG/M2)
     Route: 042
  4. MELPHALAN [Concomitant]
     Indication: PREOPERATIVE CARE
     Dosage: ON DAYS -3 AND -2 (TOTAL DOSE 180 MG/M2)
     Route: 042
  5. TACROLIMUS [Concomitant]
     Indication: PROPHYLAXIS AGAINST GRAFT VERSUS HOST DISEASE
     Dosage: COMMENCED ON DAY -1
     Route: 041
  6. METHOTREXATE [Concomitant]
     Indication: PROPHYLAXIS AGAINST GRAFT VERSUS HOST DISEASE
     Dosage: DAYS 1, 3 AND 6
  7. NEUPOGEN [Concomitant]

REACTIONS (2)
  - ENGRAFTMENT SYNDROME [None]
  - INFLUENZA [None]
